FAERS Safety Report 18932868 (Version 1)
Quarter: 2021Q1

REPORT INFORMATION
  Report Type: Spontaneous
  Country: US (occurrence: US)
  Receive Date: 20210224
  Receipt Date: 20210224
  Transmission Date: 20210420
  Serious: Yes (Other)
  Sender: FDA-Public Use
  Company Number: US-GLOBAL BLOOD THERAPEUTICS INC-US-GBT-21-00527

PATIENT
  Age: 28 Year
  Sex: Male

DRUGS (1)
  1. OXBRYTA [Suspect]
     Active Substance: VOXELOTOR
     Indication: SICKLE CELL ANAEMIA WITH CRISIS
     Route: 048
     Dates: start: 20201009

REACTIONS (2)
  - Sickle cell anaemia with crisis [Unknown]
  - Product dose omission issue [Unknown]

NARRATIVE: CASE EVENT DATE: 20210211
